FAERS Safety Report 8824479 (Version 3)
Quarter: 2014Q2

REPORT INFORMATION
  Report Type: Report from Study
  Country: FI (occurrence: FI)
  Receive Date: 20121004
  Receipt Date: 20140506
  Transmission Date: 20141212
  Serious: Yes (Hospitalization, Other)
  Sender: FDA-Public Use
  Company Number: FI-ELI_LILLY_AND_COMPANY-FI201209007237

PATIENT
  Sex: Female

DRUGS (4)
  1. TERIPARATIDE [Suspect]
     Indication: OSTEOPOROSIS
     Dosage: 20 UG, QD
     Dates: start: 20120510
  2. CALCIUM                            /01483701/ [Concomitant]
     Dosage: UNK UNK, UNKNOWN
     Route: 065
  3. ANTIINFLAMMATORY AGENTS [Concomitant]
  4. PAIN RELIEVER [Concomitant]

REACTIONS (4)
  - Pyelonephritis [Recovered/Resolved]
  - Cystitis [Unknown]
  - Diarrhoea [Recovered/Resolved]
  - Movement disorder [Unknown]
